FAERS Safety Report 6054309-9 (Version None)
Quarter: 2009Q1

REPORT INFORMATION
  Report Type: 
  Country: None (occurrence: None)
  Receive Date: 20090127
  Receipt Date: 20090122
  Transmission Date: 20090719
  Serious: Yes (Disabling)
  Sender: FDA-Public Use
  Company Number: CL-ROCHE-610083

PATIENT
  Sex: Female
  Weight: 56 kg

DRUGS (1)
  1. KETOROLAC TROMETHAMINE [Suspect]
     Indication: MALAISE
     Dosage: DRUG NAME REPORTED AS ^KETOROLAC TROMETAMOL^ (SYNDOL TABLETS)
     Route: 048
     Dates: start: 20090111

REACTIONS (3)
  - CHILLS [None]
  - NAUSEA [None]
  - VOMITING [None]
